FAERS Safety Report 9197673 (Version 1)
Quarter: 2013Q1

REPORT INFORMATION
  Report Type: Spontaneous
  Country: US (occurrence: US)
  Receive Date: 20130328
  Receipt Date: 20130328
  Transmission Date: 20140127
  Serious: No
  Sender: FDA-Public Use
  Company Number: US-B.I. PHARMACEUTICALS,INC./RIDGEFIELD-2013-BI-07770BP

PATIENT
  Age: 81 Year
  Sex: Female
  Weight: 86 kg

DRUGS (1)
  1. ZANTAC (RANITIDINE HYDROCHLORIDE) [Suspect]
     Indication: DYSPEPSIA
     Dosage: 150 MG
     Route: 048
     Dates: start: 20130308, end: 20130318

REACTIONS (2)
  - Eye irritation [Not Recovered/Not Resolved]
  - Paraesthesia [Not Recovered/Not Resolved]
